FAERS Safety Report 22659110 (Version 1)
Quarter: 2023Q2

REPORT INFORMATION
  Report Type: Spontaneous
  Country: FR (occurrence: FR)
  Receive Date: 20230630
  Receipt Date: 20230630
  Transmission Date: 20230722
  Serious: Yes (Hospitalization, Other)
  Sender: FDA-Public Use
  Company Number: FR-INCYTE CORPORATION-2023IN005475

PATIENT

DRUGS (2)
  1. TAFASITAMAB [Suspect]
     Active Substance: TAFASITAMAB
     Indication: Diffuse large B-cell lymphoma recurrent
     Dosage: 792 MILLIGRAM
     Route: 042
     Dates: start: 20221028, end: 20221107
  2. LENALIDOMIDE [Suspect]
     Active Substance: LENALIDOMIDE
     Indication: Diffuse large B-cell lymphoma recurrent
     Dosage: 25 MILLIGRAM, QD  (D1 TO D21)
     Route: 048
     Dates: start: 20221028

REACTIONS (11)
  - Pericardial effusion [Unknown]
  - Polydipsia [Unknown]
  - Dyspnoea exertional [Unknown]
  - Asthenia [Unknown]
  - Diffuse large B-cell lymphoma [Unknown]
  - Disease complication [Unknown]
  - Lymphadenopathy [Unknown]
  - Splenomegaly [Unknown]
  - Cognitive disorder [Unknown]
  - General physical health deterioration [Unknown]
  - Disease progression [Unknown]
